FAERS Safety Report 5345306-7 (Version None)
Quarter: 2007Q2

REPORT INFORMATION
  Report Type: 
  Country: None (occurrence: None)
  Receive Date: 20070601
  Receipt Date: 20070517
  Transmission Date: 20071010
  Serious: Yes (Hospitalization)
  Sender: FDA-Public Use
  Company Number: T200700572

PATIENT
  Age: 41 Year
  Sex: Male

DRUGS (3)
  1. OXYCODONE AND ACETAMINOPHEN [Suspect]
     Indication: ANALGESIC EFFECT
     Dosage: 1-2 TABLETS EVERY 4-6 HOURS FOR PAIN, ORAL
     Route: 048
  2. HYDROMORPHONE HCL [Concomitant]
  3. ANTIBIOTICS [Concomitant]

REACTIONS (18)
  - APNOEA [None]
  - BRADYCARDIA [None]
  - DEPRESSED LEVEL OF CONSCIOUSNESS [None]
  - HYPERHIDROSIS [None]
  - HYPOTENSION [None]
  - HYPOVENTILATION [None]
  - LETHARGY [None]
  - LOSS OF CONSCIOUSNESS [None]
  - MIOSIS [None]
  - OSTEOMYELITIS [None]
  - POST PROCEDURAL COMPLICATION [None]
  - PUPILLARY LIGHT REFLEX TESTS ABNORMAL [None]
  - PYREXIA [None]
  - RESPIRATORY DEPRESSION [None]
  - SINUS ARREST [None]
  - SKIN DISCOLOURATION [None]
  - SOMNOLENCE [None]
  - STUPOR [None]
